FAERS Safety Report 25633439 (Version 1)
Quarter: 2025Q3

REPORT INFORMATION
  Report Type: Spontaneous
  Country: US (occurrence: None)
  Receive Date: 20250731
  Receipt Date: 20250731
  Transmission Date: 20251020
  Serious: No
  Sender: FDA-CTU
  Company Number: None

PATIENT
  Age: 38 Year
  Sex: Female

DRUGS (1)
  1. ZURZUVAE [Suspect]
     Active Substance: ZURANOLONE
     Indication: Perinatal depression
     Dosage: 50 MG AT BEDTIME ORAL
     Route: 048

REACTIONS (5)
  - Somnolence [None]
  - Headache [None]
  - Brain fog [None]
  - Lactation disorder [None]
  - Therapy cessation [None]

NARRATIVE: CASE EVENT DATE: 20250623
